FAERS Safety Report 7188801-0 (Version None)
Quarter: 2010Q4

REPORT INFORMATION
  Report Type: 
  Country: None (occurrence: None)
  Receive Date: 20101222
  Receipt Date: 20100727
  Transmission Date: 20110411
  Serious: No
  Sender: FDA-Public Use
  Company Number: US-AMGEN-KDL427416

PATIENT

DRUGS (10)
  1. ENBREL [Suspect]
     Indication: PRODUCT USED FOR UNKNOWN INDICATION
     Dosage: 25 MG, 2 TIMES/WK
  2. HYDROXYCHLOROQUINE SULFATE [Concomitant]
     Dosage: 200 MG, UNK
  3. METHOTREXATE [Concomitant]
     Dosage: 2.5 MG, UNK
  4. PREDNISONE [Concomitant]
     Dosage: 1 MG, UNK
  5. TRAMADOL HYDROCHLORIDE [Concomitant]
     Dosage: 50 MG, UNK
  6. DICLOFENAC [Concomitant]
     Dosage: 100 MG, UNK
  7. FOLIC ACID [Concomitant]
     Dosage: 1 MG, UNK
  8. MISOPROSTOL [Concomitant]
     Dosage: 100 MG, UNK
  9. TEMAZEPAM [Concomitant]
     Dosage: 15 MG, UNK
  10. ETHINYL ESTRADIOL [Concomitant]
     Dosage: .03 MG, UNK

REACTIONS (2)
  - INJECTION SITE PAIN [None]
  - SINUSITIS [None]
